FAERS Safety Report 7083683-X (Version None)
Quarter: 2010Q4

REPORT INFORMATION
  Report Type: 
  Country: None (occurrence: None)
  Receive Date: 20101103
  Receipt Date: 20101103
  Transmission Date: 20110411
  Serious: No
  Sender: FDA-Public Use
  Company Number: None

PATIENT
  Sex: Female
  Weight: 56.6996 kg

DRUGS (2)
  1. WELLBUTRIN SR [Suspect]
     Indication: DEATH OF RELATIVE
     Dosage: 150MG QD PO
     Route: 048
     Dates: start: 20101015, end: 20101102
  2. WELLBUTRIN SR [Suspect]
     Indication: DEPRESSION
     Dosage: 150MG QD PO
     Route: 048
     Dates: start: 20101015, end: 20101102

REACTIONS (2)
  - OEDEMA PERIPHERAL [None]
  - URTICARIA [None]
